FAERS Safety Report 18337919 (Version 1)
Quarter: 2020Q4

REPORT INFORMATION
  Report Type: Spontaneous
  Country: US (occurrence: US)
  Receive Date: 20201001
  Receipt Date: 20201001
  Transmission Date: 20210113
  Serious: Yes (Death)
  Sender: FDA-Public Use
  Company Number: None

PATIENT
  Age: 63 Year
  Sex: Male
  Weight: 91 kg

DRUGS (22)
  1. ATORVASTATIN 40MG FEED TUBE AT BEDTIME [Concomitant]
     Dates: start: 20200709, end: 20200802
  2. HYDROXYCHLOROQUINE 400MG PO Q12HR [Concomitant]
     Dates: start: 20200728, end: 20200729
  3. CONVALESCENT PLASMA 07/03, 07/06 [Concomitant]
     Dates: start: 20200703, end: 20200706
  4. INSULIN GLARGINE/LISPRO [Concomitant]
     Dates: start: 20200709, end: 20200913
  5. CEFEPIME 1 GM IV Q6HR [Concomitant]
     Dates: start: 20200719, end: 20200723
  6. DEXAMETHASONE 6MG IV ONCE DAILY [Concomitant]
     Dates: start: 20200709, end: 20200802
  7. ENOXAPARIN 90MG SQ Q12HR, 40MG SQ AT BEDTIME X4DAYS, THEN 90MG SQ Q12H [Concomitant]
     Dates: start: 20200709, end: 20200818
  8. METHYLPREDNISOLONE 40MG IV Q8HR [Concomitant]
     Dates: start: 20200817, end: 20200906
  9. SULFAMETHOXAZOLE/TRIMETHOPRIM 800/160MG PO ONCE DAILY [Concomitant]
     Dates: start: 20200825, end: 20200913
  10. MELATONIN 9MG PO QHS [Concomitant]
     Dates: start: 20200829, end: 20200907
  11. ASCORBIC ACID 1000MG PO ONCE DAILY THEN FEED TUBE BID [Concomitant]
     Dates: start: 20200721, end: 20200913
  12. ENOXAPARIN 50MG SQ Q12HR [Concomitant]
     Dates: start: 20200819, end: 20200913
  13. CHOLECALCIFEROL 1000 U PO ONCE DAILY [Concomitant]
     Dates: start: 20200801, end: 20200831
  14. TOCILIZUMAB IV ONCE [Concomitant]
     Dates: start: 20200702, end: 20200702
  15. CETRIAXONE 1 GM IV DAILY [Concomitant]
     Dates: start: 20200709, end: 20200715
  16. FAMOTIDINE 20MG FEED TUBE DAILY X26DAYS, IV DAILY X9DAYS, THEN PO BID [Concomitant]
     Dates: start: 20200709, end: 20200818
  17. FLUCONAZOLE 200MG PO DAILY [Concomitant]
     Dates: start: 20200731, end: 20200803
  18. ZINC SULFATE 220MG FEED TUBE DAILY X5DAYS THEN PO DAILY X8DAYS [Concomitant]
     Dates: start: 20200709, end: 20200728
  19. REMDESIVIR. [Suspect]
     Active Substance: REMDESIVIR
     Indication: COVID-19 PNEUMONIA
     Route: 042
     Dates: start: 20200706, end: 20200710
  20. FLUCONAZOLE 150MG PO DAILY X3DAYS, 400MG IV ONCE, 200MG IV DAILY X3DAY [Concomitant]
     Dates: start: 20200716, end: 20200728
  21. MEROPENEM RENALLY DOSED IV [Concomitant]
     Dates: start: 20200723, end: 20200913
  22. VANCOMYCIN IV PER PROTOCOL [Concomitant]
     Dates: start: 20200802, end: 20200807

REACTIONS (5)
  - Hypernatraemia [None]
  - Hypertriglyceridaemia [None]
  - Leukocytosis [None]
  - Respiratory failure [None]
  - Acidosis [None]

NARRATIVE: CASE EVENT DATE: 20200914
